FAERS Safety Report 24586969 (Version 1)
Quarter: 2024Q4

REPORT INFORMATION
  Report Type: Report from Study
  Country: JP (occurrence: JP)
  Receive Date: 20241107
  Receipt Date: 20241107
  Transmission Date: 20250114
  Serious: Yes (Other)
  Sender: JOHNSON AND JOHNSON
  Company Number: JP-JNJFOC-20241105604

PATIENT

DRUGS (1)
  1. EPOPROSTENOL SODIUM [Suspect]
     Active Substance: EPOPROSTENOL SODIUM
     Indication: Pulmonary arterial hypertension
     Route: 041

REACTIONS (6)
  - Gastric cancer stage 0 [Unknown]
  - Gastritis hypertrophic [Unknown]
  - Gastric mucosal hypertrophy [Unknown]
  - Gastric mucosal hypertrophy [Unknown]
  - Gastric mucosal lesion [Unknown]
  - Gastric mucosa erythema [Unknown]
